FAERS Safety Report 20405128 (Version 1)
Quarter: 2022Q1

REPORT INFORMATION
  Report Type: Spontaneous
  Country: US (occurrence: None)
  Receive Date: 20220128
  Receipt Date: 20220128
  Transmission Date: 20220423
  Serious: No
  Sender: FDA-Public Use
  Company Number: None

PATIENT
  Age: 86 Year
  Sex: Female
  Weight: 47.25 kg

DRUGS (4)
  1. IBRANCE [Suspect]
     Active Substance: PALBOCICLIB
     Indication: Breast cancer
     Dosage: OTHER FREQUENCY : QD FOR 21/28 DAYS;?
     Route: 048
     Dates: start: 20211111, end: 20220128
  2. TRAMADOL [Concomitant]
     Active Substance: TRAMADOL
  3. ELIQUIS [Concomitant]
     Active Substance: APIXABAN
  4. GABAPENTIN [Concomitant]
     Active Substance: GABAPENTIN

REACTIONS (1)
  - Hospice care [None]

NARRATIVE: CASE EVENT DATE: 20220128
